FAERS Safety Report 5167109-9 (Version None)
Quarter: 2006Q4

REPORT INFORMATION
  Report Type: 
  Country: None (occurrence: None)
  Receive Date: 20061129
  Receipt Date: 20061116
  Transmission Date: 20070319
  Serious: Yes (Death, Hospitalization)
  Sender: FDA-Public Use
  Company Number: 2006135136

PATIENT
  Age: 59 Year
  Sex: Female
  Weight: 58 kg

DRUGS (2)
  1. SUTENT [Suspect]
     Indication: RENAL CELL CARCINOMA STAGE UNSPECIFIED
     Dosage: 50 MG, ORAL
     Route: 048
     Dates: start: 20060501, end: 20061027
  2. COTRIM [Suspect]
     Indication: URINARY TRACT INFECTION
     Dosage: 1920 MG, ORAL
     Route: 048
     Dates: start: 20061023, end: 20061027

REACTIONS (8)
  - ACUTE HEPATIC FAILURE [None]
  - ANURIA [None]
  - CARDIOVASCULAR DISORDER [None]
  - DIARRHOEA [None]
  - HYPOGLYCAEMIA [None]
  - HYPOTHERMIA [None]
  - PLATELET COUNT ABNORMAL [None]
  - URINARY TRACT INFECTION [None]
